FAERS Safety Report 8159981-5 (Version None)
Quarter: 2012Q1

REPORT INFORMATION
  Report Type: 
  Country: None (occurrence: None)
  Receive Date: 20120223
  Receipt Date: 20120216
  Transmission Date: 20120608
  Serious: Yes (Other)
  Sender: FDA-Public Use
  Company Number: US-GLAXOSMITHKLINE-A0886596A

PATIENT
  Age: 66 Year
  Sex: Female
  Weight: 83.2 kg

DRUGS (3)
  1. AVANDIA [Suspect]
     Indication: DIABETES MELLITUS
     Dosage: 4MG PER DAY
     Route: 048
     Dates: start: 20060221, end: 20070101
  2. COZAAR [Concomitant]
  3. METFORMIN HCL [Concomitant]

REACTIONS (1)
  - MYOCARDIAL INFARCTION [None]
